FAERS Safety Report 25145665 (Version 4)
Quarter: 2025Q4

REPORT INFORMATION
  Report Type: Report from Study
  Country: US (occurrence: US)
  Receive Date: 20250401
  Receipt Date: 20251007
  Transmission Date: 20260117
  Serious: Yes (Hospitalization, Other)
  Sender: MERCK SHARP & DOHME LLC
  Company Number: US-009507513-2265718

PATIENT
  Age: 67 Year
  Sex: Female

DRUGS (2)
  1. PEMBROLIZUMAB [Suspect]
     Active Substance: PEMBROLIZUMAB
     Indication: Squamous cell carcinoma of head and neck
     Route: 042
     Dates: start: 20250212
  2. FETRASTOBART VEDOTIN [Suspect]
     Active Substance: FETRASTOBART VEDOTIN
     Indication: Squamous cell carcinoma of head and neck
     Dosage: TIME INTERVAL: CYCLICAL: 1.5 MG/KG 2Q3W
     Route: 042
     Dates: start: 20250212

REACTIONS (1)
  - Acute kidney injury [Recovered/Resolved]

NARRATIVE: CASE EVENT DATE: 20250307
